FAERS Safety Report 5746714-2 (Version None)
Quarter: 2008Q2

REPORT INFORMATION
  Report Type: 
  Country: None (occurrence: None)
  Receive Date: 20080520
  Receipt Date: 20080509
  Transmission Date: 20081010
  Serious: Yes (Hospitalization)
  Sender: FDA-Public Use
  Company Number: CIP08000465

PATIENT
  Age: 48 Year
  Sex: Male

DRUGS (4)
  1. ACTONEL [Suspect]
     Indication: OSTEOPOROSIS
     Dosage: ORAL
     Route: 048
     Dates: start: 20070718
  2. SERETIDE /01420901/ (SALMETEROL XINAFOATE, FLUTICASONE PROPIONATE) [Concomitant]
  3. ALLOPURINOL [Concomitant]
  4. CELEBREX [Concomitant]

REACTIONS (2)
  - FALL [None]
  - WRIST FRACTURE [None]
